FAERS Safety Report 8888355 (Version 1)
Quarter: 2012Q4

REPORT INFORMATION
  Report Type: 
  Country: US (occurrence: US)
  Receive Date: 20121106
  Receipt Date: 20121106
  Transmission Date: 20130627
  Serious: No
  Sender: FDA-Public Use
  Company Number: US-PFIZER INC-2012275026

PATIENT
  Age: 66 Year
  Sex: Female
  Weight: 70.3 kg

DRUGS (1)
  1. CELEBREX [Suspect]
     Indication: ARTHRITIS
     Dosage: 1 DF, daily
     Route: 048
     Dates: end: 2012

REACTIONS (1)
  - Rash [Not Recovered/Not Resolved]
